FAERS Safety Report 4827898-7 (Version None)
Quarter: 2005Q4

REPORT INFORMATION
  Report Type: 
  Country: None (occurrence: None)
  Receive Date: 20051114
  Receipt Date: 20051114
  Transmission Date: 20060501
  Serious: Yes (Other)
  Sender: FDA-Public Use
  Company Number: None

PATIENT
  Sex: Male
  Weight: 95.2554 kg

DRUGS (1)
  1. GAMMAGARD S/D [Suspect]
     Indication: MONONEUROPATHY MULTIPLEX
     Dosage: 40GM    QD      IV DRIP
     Route: 041
     Dates: start: 20051104, end: 20051104

REACTIONS (3)
  - HEADACHE [None]
  - INFUSION RELATED REACTION [None]
  - VISION BLURRED [None]
